FAERS Safety Report 5730414-9 (Version None)
Quarter: 2008Q2

REPORT INFORMATION
  Report Type: 
  Country: None (occurrence: None)
  Receive Date: 20080505
  Receipt Date: 20080505
  Transmission Date: 20081010
  Serious: Yes (Other)
  Sender: FDA-Public Use
  Company Number: None

PATIENT
  Age: 43 Year
  Sex: Male
  Weight: 87.5442 kg

DRUGS (1)
  1. AMITIZA [Suspect]
     Indication: INTESTINAL OBSTRUCTION
     Dosage: 24 MCG 2XDAY
     Dates: start: 20080429, end: 20080501

REACTIONS (2)
  - DIZZINESS POSTURAL [None]
  - DYSPNOEA [None]
